FAERS Safety Report 5179218-9 (Version None)
Quarter: 2006Q4

REPORT INFORMATION
  Report Type: 
  Country: None (occurrence: None)
  Receive Date: 20061219
  Receipt Date: 20061214
  Transmission Date: 20070319
  Serious: Yes (Death)
  Sender: FDA-Public Use
  Company Number: 2006AC02334

PATIENT
  Age: 3 Year

DRUGS (1)
  1. DIPRIVAN [Suspect]
     Indication: SEDATION
     Dosage: VARIABLE DOSE, HIGHEST 10ML/HOUR
     Route: 042
     Dates: start: 20050715, end: 20050719

REACTIONS (1)
  - PROPOFOL INFUSION SYNDROME [None]
